FAERS Safety Report 4305930-7 (Version None)
Quarter: 2004Q1

REPORT INFORMATION
  Report Type: 
  Country: None (occurrence: None)
  Receive Date: 20040226
  Receipt Date: 20031206
  Transmission Date: 20041129
  Serious: Yes (Hospitalization, Other)
  Sender: FDA-Public Use
  Company Number: KII-2003-0007089

PATIENT
  Age: 35 Year
  Sex: Female

DRUGS (2)
  1. OXYCODONE HYDROCHLORIDE(SIMILAR TO NDA 20-553)(OXYCODONE HYDROCHLORIDE [Suspect]
     Indication: DRUG USE FOR UNKNOWN INDICATION
  2. WELLBUTRIN [Concomitant]

REACTIONS (12)
  - ASPIRATION [None]
  - BLOOD GLUCOSE INCREASED [None]
  - BLOOD PRESSURE SYSTOLIC INCREASED [None]
  - CHEST X-RAY ABNORMAL [None]
  - DRUG ABUSER [None]
  - DRY MOUTH [None]
  - HEART RATE DECREASED [None]
  - INTENTIONAL OVERDOSE [None]
  - MIOSIS [None]
  - SINUS TACHYCARDIA [None]
  - SNORING [None]
  - SOMNOLENCE [None]
